FAERS Safety Report 16543758 (Version 1)
Quarter: 2019Q3

REPORT INFORMATION
  Report Type: Spontaneous
  Country: CN (occurrence: CN)
  Receive Date: 20190709
  Receipt Date: 20190709
  Transmission Date: 20191004
  Serious: Yes (Other)
  Sender: FDA-Public Use
  Company Number: CN-BAYER-2019-127348

PATIENT
  Age: 41 Year
  Sex: Female
  Weight: 85 kg

DRUGS (2)
  1. AVELOX [Suspect]
     Active Substance: MOXIFLOXACIN HYDROCHLORIDE
     Indication: INFECTION
  2. AVELOX [Suspect]
     Active Substance: MOXIFLOXACIN HYDROCHLORIDE
     Indication: OVARIAN CYST RUPTURED
     Dosage: 0.4 G, QD
     Route: 041
     Dates: start: 20190605, end: 20190606

REACTIONS (2)
  - White blood cell count decreased [Recovered/Resolved]
  - Systemic infection [None]

NARRATIVE: CASE EVENT DATE: 20190606
